FAERS Safety Report 7463073-8 (Version None)
Quarter: 2011Q2

REPORT INFORMATION
  Report Type: 
  Country: None (occurrence: None)
  Receive Date: 20110506
  Receipt Date: 20110427
  Transmission Date: 20111010
  Serious: Yes (Hospitalization, Other)
  Sender: FDA-Public Use
  Company Number: JP-SANOFI-AVENTIS-2010SA014626

PATIENT
  Age: 73 Year
  Sex: Female
  Weight: 48 kg

DRUGS (22)
  1. TS-1 [Suspect]
     Route: 048
     Dates: start: 20100317, end: 20110422
  2. AVASTIN [Suspect]
     Indication: COLON CANCER
     Route: 041
     Dates: start: 20100205, end: 20100205
  3. BLOPRESS [Concomitant]
     Indication: HYPERTENSION
     Route: 048
  4. LYRICA [Concomitant]
     Indication: NEUROPATHY PERIPHERAL
     Route: 048
     Dates: start: 20101227
  5. CRAVIT [Concomitant]
     Indication: LACRIMATION INCREASED
     Route: 031
     Dates: start: 20110113
  6. HEPARIN [Concomitant]
     Route: 061
     Dates: start: 20101213
  7. OXALIPLATIN [Suspect]
     Route: 041
     Dates: start: 20100219, end: 20100219
  8. AMLODIPINE [Concomitant]
     Indication: HYPERTENSION
     Route: 048
  9. OXALIPLATIN [Suspect]
     Indication: COLON CANCER
     Route: 041
     Dates: start: 20100205, end: 20100205
  10. AVASTIN [Suspect]
     Route: 041
     Dates: start: 20110415, end: 20110415
  11. BIFIDOBACTERIUM BIFIDUM/ENTEROCOCCUS FAECIUM [Concomitant]
     Route: 048
     Dates: start: 20100305
  12. OLMETEC [Concomitant]
     Indication: HYPERTENSION
     Route: 048
     Dates: start: 20100512
  13. CLARITIN [Concomitant]
     Indication: RHINITIS ALLERGIC
     Route: 048
     Dates: start: 20110219
  14. LEUCOVORIN CALCIUM [Suspect]
     Indication: LARGE INTESTINE CARCINOMA
     Route: 048
     Dates: start: 20100205, end: 20110422
  15. AVASTIN [Suspect]
     Route: 041
     Dates: start: 20100219, end: 20100219
  16. PARIET [Concomitant]
     Indication: PROPHYLAXIS AGAINST GASTROINTESTINAL ULCER
     Route: 048
     Dates: start: 20100205
  17. MYSLEE [Concomitant]
     Indication: INSOMNIA
     Route: 048
     Dates: start: 20100226
  18. BLOOD SUBSTITUTES AND PLASMA PROTEIN FRACTION [Concomitant]
     Dosage: 700ML, 2L, 2.5L, 1L
     Route: 041
     Dates: start: 20100305, end: 20100310
  19. OXALIPLATIN [Suspect]
     Route: 041
     Dates: start: 20100902, end: 20100902
  20. DIFLUPREDNATE [Concomitant]
     Route: 061
     Dates: start: 20101213
  21. TS-1 [Suspect]
     Indication: COLON CANCER
     Route: 048
     Dates: start: 20100205, end: 20100226
  22. FLUNITRAZEPAM [Concomitant]
     Indication: INSOMNIA
     Route: 048
     Dates: start: 20100909

REACTIONS (3)
  - FEMORAL NECK FRACTURE [None]
  - ENTERITIS [None]
  - PERIPHERAL SENSORY NEUROPATHY [None]
